FAERS Safety Report 25660244 (Version 6)
Quarter: 2025Q3

REPORT INFORMATION
  Report Type: Spontaneous
  Country: EU (occurrence: EU)
  Receive Date: 20250808
  Receipt Date: 20250905
  Transmission Date: 20251021
  Serious: Yes (Hospitalization)
  Sender: SANDOZ
  Company Number: None

PATIENT
  Age: 48 Year
  Sex: Female

DRUGS (28)
  1. AFINITOR [Suspect]
     Active Substance: EVEROLIMUS
     Indication: Breast cancer metastatic
     Route: 065
  2. AFINITOR [Suspect]
     Active Substance: EVEROLIMUS
     Indication: Metastases to bone
  3. AFINITOR [Suspect]
     Active Substance: EVEROLIMUS
     Indication: Metastases to central nervous system
  4. EXEMESTANE [Suspect]
     Active Substance: EXEMESTANE
     Indication: Breast cancer metastatic
     Route: 065
  5. EXEMESTANE [Suspect]
     Active Substance: EXEMESTANE
     Indication: Metastases to bone
  6. EXEMESTANE [Suspect]
     Active Substance: EXEMESTANE
     Indication: Metastases to central nervous system
  7. CARBOPLATIN [Suspect]
     Active Substance: CARBOPLATIN
     Indication: Breast cancer metastatic
     Route: 065
     Dates: start: 2024
  8. CARBOPLATIN [Suspect]
     Active Substance: CARBOPLATIN
     Indication: Metastases to bone
  9. CARBOPLATIN [Suspect]
     Active Substance: CARBOPLATIN
     Indication: Metastases to central nervous system
  10. CAPECITABINE [Suspect]
     Active Substance: CAPECITABINE
     Indication: Breast cancer metastatic
     Route: 065
     Dates: start: 2022
  11. CAPECITABINE [Suspect]
     Active Substance: CAPECITABINE
     Indication: Metastases to bone
  12. CAPECITABINE [Suspect]
     Active Substance: CAPECITABINE
     Indication: Metastases to central nervous system
  13. DENOSUMAB [Suspect]
     Active Substance: DENOSUMAB
     Indication: Breast cancer metastatic
     Route: 065
  14. DENOSUMAB [Suspect]
     Active Substance: DENOSUMAB
     Indication: Metastases to bone
  15. DENOSUMAB [Suspect]
     Active Substance: DENOSUMAB
     Indication: Metastases to bone
  16. FULVESTRANT [Suspect]
     Active Substance: FULVESTRANT
     Indication: Breast cancer metastatic
     Route: 065
  17. FULVESTRANT [Suspect]
     Active Substance: FULVESTRANT
     Indication: Metastases to bone
  18. GEMCITABINE [Suspect]
     Active Substance: GEMCITABINE
     Indication: Breast cancer metastatic
     Route: 065
     Dates: start: 2024
  19. GEMCITABINE [Suspect]
     Active Substance: GEMCITABINE
     Indication: Metastases to bone
  20. GEMCITABINE [Suspect]
     Active Substance: GEMCITABINE
     Indication: Metastases to central nervous system
  21. PALBOCICLIB [Suspect]
     Active Substance: PALBOCICLIB
     Indication: Breast cancer metastatic
     Route: 065
     Dates: start: 202405, end: 202405
  22. PALBOCICLIB [Suspect]
     Active Substance: PALBOCICLIB
     Indication: Metastases to bone
  23. PALBOCICLIB [Suspect]
     Active Substance: PALBOCICLIB
     Indication: Metastases to bone
  24. TRASTUZUMAB DERUXTECAN [Suspect]
     Active Substance: TRASTUZUMAB DERUXTECAN
     Indication: Breast cancer metastatic
     Route: 065
     Dates: start: 202405
  25. TRASTUZUMAB DERUXTECAN [Suspect]
     Active Substance: TRASTUZUMAB DERUXTECAN
     Indication: Metastases to liver
  26. CYCLOPHOSPHAMIDE [Concomitant]
     Active Substance: CYCLOPHOSPHAMIDE
     Indication: Breast cancer metastatic
     Route: 065
  27. EPIRUBICIN [Concomitant]
     Active Substance: EPIRUBICIN
     Indication: Breast cancer metastatic
     Route: 065
  28. PACLITAXEL [Concomitant]
     Active Substance: PACLITAXEL
     Indication: Breast cancer metastatic
     Route: 065

REACTIONS (5)
  - Hypocalcaemia [Recovered/Resolved]
  - Vitamin D decreased [Unknown]
  - Decreased appetite [Unknown]
  - Fatigue [Unknown]
  - Drug ineffective [Unknown]

NARRATIVE: CASE EVENT DATE: 20240101
